FAERS Safety Report 4310206-8 (Version None)
Quarter: 2004Q1

REPORT INFORMATION
  Report Type: 
  Country: None (occurrence: None)
  Receive Date: 20040301
  Receipt Date: 20040105
  Transmission Date: 20041129
  Serious: No
  Sender: FDA-Public Use
  Company Number: WAES 0401USA00116

PATIENT
  Age: 76 Year
  Sex: Female

DRUGS (4)
  1. ZETIA [Suspect]
     Indication: BLOOD CHOLESTEROL INCREASED
     Dosage: 10MG/DAILY/PO
     Dates: start: 20031230, end: 20040116
  2. COZAAR [Concomitant]
  3. VIOXX [Concomitant]
  4. ATENOLOL [Concomitant]

REACTIONS (2)
  - PAIN IN EXTREMITY [None]
  - RASH GENERALISED [None]
